FAERS Safety Report 12554271 (Version 4)
Quarter: 2016Q3

REPORT INFORMATION
  Report Type: Report from Study
  Country: PR (occurrence: PR)
  Receive Date: 20160713
  Receipt Date: 20160810
  Transmission Date: 20161109
  Serious: Yes (Hospitalization)
  Sender: FDA-Public Use
  Company Number: PR-ABBVIE-16K-131-1672071-00

PATIENT
  Age: 78 Year
  Sex: Female

DRUGS (12)
  1. FOSAMAX [Concomitant]
     Active Substance: ALENDRONATE SODIUM
     Indication: OSTEOPOROSIS
     Route: 048
  2. CALAN [Concomitant]
     Active Substance: VERAPAMIL HYDROCHLORIDE
     Indication: HYPERTENSION
     Route: 048
  3. HUMIRA [Suspect]
     Active Substance: ADALIMUMAB
     Route: 058
     Dates: start: 2016, end: 20160802
  4. ULTRACET [Concomitant]
     Active Substance: ACETAMINOPHEN\TRAMADOL HYDROCHLORIDE
     Indication: RHEUMATOID ARTHRITIS
     Route: 048
  5. ULTRACET [Concomitant]
     Active Substance: ACETAMINOPHEN\TRAMADOL HYDROCHLORIDE
     Indication: PAIN
  6. ATIVAN [Concomitant]
     Active Substance: LORAZEPAM
     Indication: PRODUCT USED FOR UNKNOWN INDICATION
     Route: 048
  7. KENALOG [Concomitant]
     Active Substance: TRIAMCINOLONE ACETONIDE
     Indication: ARTHRITIS
  8. RELAFEN [Concomitant]
     Active Substance: NABUMETONE
     Indication: ARTHRITIS
     Route: 048
  9. RELAFEN [Concomitant]
     Active Substance: NABUMETONE
     Indication: PAIN
  10. HUMIRA [Suspect]
     Active Substance: ADALIMUMAB
     Indication: RHEUMATOID ARTHRITIS
     Route: 058
     Dates: start: 20160222
  11. METFORMIN [Concomitant]
     Active Substance: METFORMIN HYDROCHLORIDE
     Indication: DIABETES MELLITUS
     Route: 048
  12. VITAMIN D [Concomitant]
     Active Substance: CHOLECALCIFEROL
     Indication: PRODUCT USED FOR UNKNOWN INDICATION
     Route: 048

REACTIONS (10)
  - Haemoglobin decreased [Not Recovered/Not Resolved]
  - Cellulitis [Not Recovered/Not Resolved]
  - Ear disorder [Unknown]
  - Pain in extremity [Recovering/Resolving]
  - Thrombosis [Recovering/Resolving]
  - Oedema peripheral [Recovering/Resolving]
  - Haematoma [Recovering/Resolving]
  - Infection [Not Recovered/Not Resolved]
  - Anaemia [Recovered/Resolved]
  - Infusion site extravasation [Recovered/Resolved]

NARRATIVE: CASE EVENT DATE: 2016
